FAERS Safety Report 25736857 (Version 1)
Quarter: 2025Q3

REPORT INFORMATION
  Report Type: Spontaneous
  Country: US (occurrence: US)
  Receive Date: 20250828
  Receipt Date: 20250828
  Transmission Date: 20251021
  Serious: No
  Sender: MERCK SHARP & DOHME LLC
  Company Number: US-009507513-2323575

PATIENT
  Sex: Female
  Weight: 45.4 kg

DRUGS (30)
  1. WINREVAIR [Suspect]
     Active Substance: SOTATERCEPT-CSRK
     Indication: Product used for unknown indication
  2. WINREVAIR [Suspect]
     Active Substance: SOTATERCEPT-CSRK
  3. WINREVAIR [Suspect]
     Active Substance: SOTATERCEPT-CSRK
  4. WINREVAIR [Suspect]
     Active Substance: SOTATERCEPT-CSRK
  5. vitamin B-1 (Thiamine mononitrate) [Concomitant]
  6. POTASSIUM CHLORIDE [Concomitant]
     Active Substance: POTASSIUM CHLORIDE
  7. Hyaluronic acid sodium (Hyaluronate sodium) [Concomitant]
  8. Welchol (Colesevelam hydrochloride) [Concomitant]
  9. CALCIUM CARBONATE [Concomitant]
     Active Substance: CALCIUM CARBONATE
  10. Turmeric (Curcuma longa) [Concomitant]
  11. ACIPHEX [Concomitant]
     Active Substance: RABEPRAZOLE SODIUM
  12. LETAIRIS [Concomitant]
     Active Substance: AMBRISENTAN
  13. CLOBETASOL PROPIONATE [Concomitant]
     Active Substance: CLOBETASOL PROPIONATE
  14. ADCIRCA [Concomitant]
     Active Substance: TADALAFIL
  15. BIOTIN [Concomitant]
     Active Substance: BIOTIN
  16. Aspirin EC (Acetylsalicylic acid) [Concomitant]
  17. Fluocinonide (Fluocinonide) [Concomitant]
  18. BRIMONIDINE TARTRATE [Concomitant]
     Active Substance: BRIMONIDINE TARTRATE
  19. MYCOPHENOLIC ACID [Concomitant]
     Active Substance: MYCOPHENOLIC ACID
  20. VITAMIN D3 [Concomitant]
     Active Substance: CHOLECALCIFEROL
  21. LOPERAMIDE HYDROCHLORIDE [Concomitant]
     Active Substance: LOPERAMIDE HYDROCHLORIDE
  22. ONDANSETRON HYDROCHLORIDE [Concomitant]
     Active Substance: ONDANSETRON HYDROCHLORIDE
  23. CELECOXIB [Concomitant]
     Active Substance: CELECOXIB
  24. ORENITRAM [Concomitant]
     Active Substance: TREPROSTINIL
     Indication: Pulmonary hypertension
     Route: 048
     Dates: start: 20180612
  25. VITAMINS [Concomitant]
     Active Substance: VITAMINS
  26. Omega [Concomitant]
  27. OXYGEN [Concomitant]
     Active Substance: OXYGEN
  28. FUROSEMIDE [Concomitant]
     Active Substance: FUROSEMIDE
  29. CO Q-10 (ubidecarenone) [Concomitant]
  30. FLUOXETINE HYDROCHLORIDE [Concomitant]
     Active Substance: FLUOXETINE HYDROCHLORIDE

REACTIONS (1)
  - Epistaxis [Recovered/Resolved]
